FAERS Safety Report 7101294-4 (Version None)
Quarter: 2010Q4

REPORT INFORMATION
  Report Type: 
  Country: None (occurrence: None)
  Receive Date: 20101105
  Receipt Date: 20101020
  Transmission Date: 20110411
  Serious: Yes (Disabling, Other)
  Sender: FDA-Public Use
  Company Number: ACO_01671_2010

PATIENT
  Sex: Female
  Weight: 81.6475 kg

DRUGS (6)
  1. AMPYRA [Suspect]
     Indication: GAIT DISTURBANCE
     Dosage: (10 MG BID ORAL)
     Route: 048
     Dates: start: 20100730
  2. REBIF [Concomitant]
  3. BACLOFEN [Concomitant]
  4. NAPROXEN [Concomitant]
  5. VITAMIN TAB [Concomitant]
  6. MINERAL TAB [Concomitant]

REACTIONS (17)
  - ABASIA [None]
  - BALANCE DISORDER [None]
  - CLUMSINESS [None]
  - CONDITION AGGRAVATED [None]
  - CONFUSIONAL STATE [None]
  - COORDINATION ABNORMAL [None]
  - DIZZINESS [None]
  - FEELING ABNORMAL [None]
  - GAIT DISTURBANCE [None]
  - HEADACHE [None]
  - HYPOAESTHESIA [None]
  - HYPOKINESIA [None]
  - MUSCLE SPASTICITY [None]
  - MUSCULAR WEAKNESS [None]
  - MUSCULOSKELETAL STIFFNESS [None]
  - NAUSEA [None]
  - VISUAL IMPAIRMENT [None]
